FAERS Safety Report 7691116-5 (Version None)
Quarter: 2011Q3

REPORT INFORMATION
  Report Type: 
  Country: None (occurrence: None)
  Receive Date: 20110818
  Receipt Date: 20110815
  Transmission Date: 20111222
  Serious: Yes (Hospitalization)
  Sender: FDA-Public Use
  Company Number: GB-SANOFI-AVENTIS-2011SA052199

PATIENT
  Age: 35 Year
  Sex: Male

DRUGS (10)
  1. RAMIPRIL [Suspect]
     Route: 048
  2. BUMETANIDE [Concomitant]
     Route: 048
  3. SIMVASTATIN [Concomitant]
     Route: 048
  4. TRIMETHOPRIM [Concomitant]
     Route: 048
  5. MEBEVERINE [Concomitant]
     Route: 048
  6. METFORMIN HYDROCHLORIDE [Suspect]
     Route: 048
  7. BISOPROLOL FUMARATE [Concomitant]
     Route: 048
  8. DIGOXIN [Concomitant]
     Route: 048
  9. OMEPRAZOLE [Concomitant]
     Route: 048
  10. GLIMEPIRIDE [Suspect]
     Route: 048

REACTIONS (2)
  - HYPOGLYCAEMIA [None]
  - RENAL FAILURE ACUTE [None]
